FAERS Safety Report 11734083 (Version 2)
Quarter: 2015Q4

REPORT INFORMATION
  Report Type: Spontaneous
  Country: JP (occurrence: JP)
  Receive Date: 20151113
  Receipt Date: 20151211
  Transmission Date: 20160304
  Serious: Yes (Death, Hospitalization, Other)
  Sender: FDA-Public Use
  Company Number: JP-TEVA-608881ACC

PATIENT
  Age: 63 Year
  Sex: Male

DRUGS (2)
  1. RITUXIMAB [Suspect]
     Active Substance: RITUXIMAB
     Indication: B-CELL LYMPHOMA
     Route: 042
     Dates: start: 20110615, end: 20111130
  2. BENDAMUSTINE HYDROCHLORIDE [Suspect]
     Active Substance: BENDAMUSTINE HYDROCHLORIDE
     Indication: B-CELL LYMPHOMA
     Dosage: (TWICE EVERY 3 WEEKS), DURATION:5 CYCLES
     Route: 042
     Dates: start: 20110615, end: 20111130

REACTIONS (17)
  - Enterocolitis [Unknown]
  - Pyrexia [Unknown]
  - Rash [Recovering/Resolving]
  - Lymphocyte count decreased [Unknown]
  - Endophthalmitis [Recovered/Resolved]
  - Herpes zoster [Unknown]
  - Pseudomonas infection [Unknown]
  - Shock [Unknown]
  - Neutrophil count decreased [Unknown]
  - Febrile neutropenia [Unknown]
  - Platelet count decreased [Unknown]
  - Pneumonia [Unknown]
  - Prescribed underdose [Unknown]
  - Fatigue [Unknown]
  - Disease progression [Fatal]
  - Altered state of consciousness [Unknown]
  - Malaise [Unknown]

NARRATIVE: CASE EVENT DATE: 20120105
